FAERS Safety Report 21669695 (Version 2)
Quarter: 2022Q4

REPORT INFORMATION
  Report Type: Report from Study
  Country: NL (occurrence: NL)
  Receive Date: 20221201
  Receipt Date: 20221207
  Transmission Date: 20230113
  Serious: Yes (Hospitalization)
  Sender: FDA-Public Use
  Company Number: NL-JNJFOC-20220224460

PATIENT
  Age: 46 Year
  Sex: Female
  Weight: 63.5 kg

DRUGS (21)
  1. CILTACABTAGENE AUTOLEUCEL [Suspect]
     Active Substance: CILTACABTAGENE AUTOLEUCEL
     Indication: Plasma cell myeloma
     Route: 042
     Dates: start: 20211130, end: 20211130
  2. DARATUMUMAB [Suspect]
     Active Substance: DARATUMUMAB
     Indication: Plasma cell myeloma
     Route: 058
     Dates: start: 20210915, end: 20211103
  3. CYCLOPHOSPHAMIDE [Concomitant]
     Active Substance: CYCLOPHOSPHAMIDE
     Indication: Plasma cell myeloma
     Route: 042
     Dates: start: 20211125, end: 20211127
  4. FLUDARABINE [Concomitant]
     Active Substance: FLUDARABINE PHOSPHATE
     Indication: Plasma cell myeloma
     Route: 042
     Dates: start: 20211125, end: 20211127
  5. CALCIUM CARBONATE\CHOLECALCIFEROL [Concomitant]
     Active Substance: CALCIUM CARBONATE\CHOLECALCIFEROL
     Indication: Osteoporosis prophylaxis
     Dosage: 500/800
     Route: 048
     Dates: start: 20210824
  6. VALACYCLOVIR HYDROCHLORIDE [Concomitant]
     Active Substance: VALACYCLOVIR HYDROCHLORIDE
     Indication: Infection prophylaxis
     Route: 048
     Dates: start: 20210914
  7. CARBASPIRIN CALCIUM [Concomitant]
     Active Substance: CARBASPIRIN CALCIUM
     Indication: Thrombosis prophylaxis
     Route: 048
     Dates: start: 20210914
  8. PANTOPRAZOLE [Concomitant]
     Active Substance: PANTOPRAZOLE
     Indication: Gastrointestinal disorder therapy
     Route: 048
     Dates: start: 20210914
  9. SULFAMETHOXAZOLE\TRIMETHOPRIM [Concomitant]
     Active Substance: SULFAMETHOXAZOLE\TRIMETHOPRIM
     Indication: Infection prophylaxis
     Dosage: 80/400
     Route: 048
     Dates: start: 20210914
  10. OXYCODONE HYDROCHLORIDE [Concomitant]
     Active Substance: OXYCODONE HYDROCHLORIDE
     Indication: Pelvic pain
     Route: 048
     Dates: start: 20211213
  11. CELECOXIB [Concomitant]
     Active Substance: CELECOXIB
     Indication: Pain prophylaxis
     Route: 048
     Dates: start: 20211214
  12. CELECOXIB [Concomitant]
     Active Substance: CELECOXIB
     Indication: Chondritis
     Route: 048
     Dates: start: 20220111, end: 20220206
  13. ACETAMINOPHEN [Concomitant]
     Active Substance: ACETAMINOPHEN
     Indication: Pelvic pain
     Route: 042
     Dates: start: 20211216
  14. ACYCLOVIR [Concomitant]
     Active Substance: ACYCLOVIR
     Indication: Infection prophylaxis
     Route: 042
     Dates: start: 20211222
  15. POSACONAZOLE [Concomitant]
     Active Substance: POSACONAZOLE
     Indication: Infection prophylaxis
     Route: 048
     Dates: start: 20211223
  16. PREDNISOLONE [Concomitant]
     Active Substance: PREDNISOLONE
     Indication: Facial paralysis
     Route: 048
     Dates: start: 20220110, end: 20220128
  17. PREDNISOLONE [Concomitant]
     Active Substance: PREDNISOLONE
     Indication: Trigeminal nerve disorder
  18. COVID-19 VACCINE [Concomitant]
     Indication: Infection prophylaxis
     Dosage: MODERNA
     Route: 030
     Dates: start: 20210326, end: 20210326
  19. COVID-19 VACCINE [Concomitant]
     Route: 030
     Dates: start: 20210423, end: 20210423
  20. PREDNISONE [Concomitant]
     Active Substance: PREDNISONE
     Indication: Adrenal insufficiency
     Route: 048
     Dates: start: 20220207, end: 20220210
  21. PREDNISONE [Concomitant]
     Active Substance: PREDNISONE
     Dosage: 5-15
     Route: 048
     Dates: start: 20220210, end: 20220214

REACTIONS (1)
  - Urosepsis [Recovered/Resolved]

NARRATIVE: CASE EVENT DATE: 20220206
